FAERS Safety Report 13278543 (Version 1)
Quarter: 2017Q1

REPORT INFORMATION
  Report Type: Spontaneous
  Country: CN (occurrence: CN)
  Receive Date: 20170228
  Receipt Date: 20170228
  Transmission Date: 20170428
  Serious: Yes (Other)
  Sender: FDA-Public Use
  Company Number: CN-ABBVIE-17P-034-1891889-00

PATIENT
  Age: 26 Year
  Sex: Male

DRUGS (3)
  1. DEPAKINE CHRONO [Suspect]
     Active Substance: VALPROATE SODIUM
     Indication: EMOTIONAL DISORDER
     Dosage: EXTENDED RELEASE
     Route: 048
     Dates: start: 20161027, end: 20161110
  2. DEPAKINE CHRONO [Suspect]
     Active Substance: VALPROATE SODIUM
     Dosage: EXTENDED RELEASE
     Route: 048
     Dates: start: 20161111, end: 20161119
  3. OU LAN NING [Concomitant]
     Indication: PRODUCT USED FOR UNKNOWN INDICATION
     Dates: start: 20161027, end: 20161119

REACTIONS (3)
  - Alanine aminotransferase increased [Recovering/Resolving]
  - Weight increased [Not Recovered/Not Resolved]
  - Lipids increased [Recovering/Resolving]

NARRATIVE: CASE EVENT DATE: 20161116
